FAERS Safety Report 18207950 (Version 1)
Quarter: 2020Q3

REPORT INFORMATION
  Report Type: Report from Study
  Country: CA (occurrence: CA)
  Receive Date: 20200828
  Receipt Date: 20200828
  Transmission Date: 20201103
  Serious: Yes (Death)
  Sender: FDA-Public Use
  Company Number: CA-PFIZER INC-2020334211

PATIENT

DRUGS (1)
  1. PALBOCICLIB [Suspect]
     Active Substance: PALBOCICLIB
     Dosage: UNK

REACTIONS (10)
  - Anaemia [Fatal]
  - White blood cell count decreased [Fatal]
  - Blood bilirubin increased [Fatal]
  - Neutrophil count decreased [Recovered/Resolved]
  - Platelet count decreased [Fatal]
  - Hypocalcaemia [Fatal]
  - International normalised ratio increased [Fatal]
  - Hyponatraemia [Fatal]
  - Hypophosphataemia [Fatal]
  - Alanine aminotransferase increased [Fatal]

NARRATIVE: CASE EVENT DATE: 20200720
